FAERS Safety Report 5532199-8 (Version None)
Quarter: 2007Q4

REPORT INFORMATION
  Report Type: 
  Country: None (occurrence: None)
  Receive Date: 20071203
  Receipt Date: 20070308
  Transmission Date: 20080405
  Serious: No
  Sender: FDA-Public Use
  Company Number: US-BRISTOL-MYERS SQUIBB COMPANY-13706023

PATIENT
  Sex: Female

DRUGS (1)
  1. VIDEX [Suspect]

REACTIONS (1)
  - ADVERSE EVENT [None]
